FAERS Safety Report 20786723 (Version 3)
Quarter: 2022Q2

REPORT INFORMATION
  Report Type: Spontaneous
  Country: FR (occurrence: FR)
  Receive Date: 20220505
  Receipt Date: 20220510
  Transmission Date: 20220721
  Serious: Yes (Death, Hospitalization, Other)
  Sender: FDA-Public Use
  Company Number: FR-ABBVIE-22K-056-4378755-00

PATIENT
  Age: 45 Year
  Sex: Female

DRUGS (2)
  1. VENETOCLAX [Suspect]
     Active Substance: VENETOCLAX
     Indication: Chronic lymphocytic leukaemia
     Route: 048
  2. RASBURICASE [Concomitant]
     Active Substance: RASBURICASE
     Indication: Product used for unknown indication

REACTIONS (8)
  - Tumour lysis syndrome [Fatal]
  - Multiple organ dysfunction syndrome [Unknown]
  - Vocal cord paralysis [Unknown]
  - Dysphagia [Unknown]
  - Sepsis [Unknown]
  - Septic shock [Unknown]
  - Tracheal disorder [Unknown]
  - Urinary tract infection [Unknown]

NARRATIVE: CASE EVENT DATE: 20220505
